FAERS Safety Report 9393448 (Version 2)
Quarter: 2013Q4

REPORT INFORMATION
  Report Type: Spontaneous
  Country: US (occurrence: US)
  Receive Date: 20130710
  Receipt Date: 20131216
  Transmission Date: 20140711
  Serious: No
  Sender: FDA-Public Use
  Company Number: US-TEVA-417939USA

PATIENT
  Age: 33 Year
  Sex: Female
  Weight: 56.3 kg

DRUGS (6)
  1. PARAGARD 380A [Suspect]
     Indication: CONTRACEPTION
     Route: 015
     Dates: start: 20130604, end: 20130708
  2. INSULIN [Concomitant]
     Indication: DIABETES MELLITUS
  3. VITAMINS [Concomitant]
     Indication: NUTRITIONAL SUPPLEMENTATION
  4. PROBIOTICA [Concomitant]
  5. PSYLLIUM [Concomitant]
  6. CHOLECALCIFEROL [Concomitant]

REACTIONS (1)
  - Device expulsion [Recovered/Resolved]
